FAERS Safety Report 9798755 (Version 2)
Quarter: 2014Q1

REPORT INFORMATION
  Report Type: Spontaneous
  Country: US (occurrence: US)
  Receive Date: 20140106
  Receipt Date: 20140106
  Transmission Date: 20141002
  Serious: No
  Sender: FDA-Public Use
  Company Number: US-GILEAD-2010-0029758

PATIENT
  Sex: Female
  Weight: 76.2 kg

DRUGS (9)
  1. LETAIRIS [Suspect]
     Indication: PULMONARY ARTERIAL HYPERTENSION
     Route: 048
     Dates: start: 20090318
  2. FUROSEMIDE [Concomitant]
  3. DIOVAN [Concomitant]
  4. VENTAVIS [Concomitant]
  5. NASONEX [Concomitant]
  6. SINGULAIR [Concomitant]
  7. TYLENOL [Concomitant]
  8. ALLERGY SHOT [Concomitant]
  9. KLOR-CON [Concomitant]

REACTIONS (2)
  - Alopecia [Unknown]
  - Nasal congestion [Unknown]
